FAERS Safety Report 10413669 (Version 1)
Quarter: 2014Q3

REPORT INFORMATION
  Report Type: Spontaneous
  Country: FR (occurrence: FR)
  Receive Date: 20140827
  Receipt Date: 20140827
  Transmission Date: 20150326
  Serious: Yes (Hospitalization)
  Sender: FDA-Public Use
  Company Number: PHHY2014FR105130

PATIENT
  Age: 31 Year
  Sex: Male

DRUGS (4)
  1. URBANYL [Suspect]
     Active Substance: CLOBAZAM
     Dosage: 2 DF (20 MG), ONCE
     Route: 048
     Dates: start: 20140811, end: 20140811
  2. TRILEPTAL [Suspect]
     Active Substance: OXCARBAZEPINE
     Dosage: 4 DF (2400 MG), ONCE
     Route: 048
     Dates: start: 20140811, end: 20140811
  3. SABRIL [Suspect]
     Active Substance: VIGABATRIN
     Dosage: 4 DF (2000 MG), ONCE
     Route: 048
     Dates: start: 20140811, end: 20140811
  4. NOZINAN//LEVOMEPROMAZINE MALEATE [Suspect]
     Active Substance: LEVOMEPROMAZINE
     Dosage: 2 DF (50 MG), ONCE
     Route: 048
     Dates: start: 20140811, end: 20140811

REACTIONS (3)
  - Incorrect dose administered [Recovered/Resolved]
  - Somnolence [Recovered/Resolved]
  - Accidental overdose [Recovered/Resolved]

NARRATIVE: CASE EVENT DATE: 20140811
